FAERS Safety Report 9125230 (Version 1)
Quarter: 2013Q1

REPORT INFORMATION
  Report Type: Report from Study
  Country: DE (occurrence: DE)
  Receive Date: 20130227
  Receipt Date: 20130227
  Transmission Date: 20140127
  Serious: Yes (Hospitalization)
  Sender: FDA-Public Use
  Company Number: DE-GILEAD-2013-0069782

PATIENT
  Age: 79 Year
  Sex: Female

DRUGS (17)
  1. BLINDED PLACEBO [Suspect]
     Indication: ANGINA PECTORIS
     Dosage: 750 MG, BID
     Route: 048
     Dates: start: 20130117
  2. RANOLAZINE [Suspect]
     Indication: ANGINA PECTORIS
     Dosage: 750 MG, BID
     Route: 048
     Dates: start: 20130117
  3. BLINDED PLACEBO [Suspect]
     Dosage: 500 MG, BID
     Route: 048
     Dates: start: 20130103, end: 20130117
  4. RANOLAZINE [Suspect]
     Dosage: 500 MG, BID
     Route: 048
     Dates: start: 20130103, end: 20130117
  5. BLINDED PLACEBO [Suspect]
     Dosage: 375 MG, BID
     Route: 048
     Dates: start: 20121220, end: 20130103
  6. RANOLAZINE [Suspect]
     Dosage: 375 MG, BID
     Route: 048
     Dates: start: 20121220, end: 20130103
  7. ASS [Concomitant]
     Indication: CORONARY ARTERY DISEASE
     Dosage: 100 MG, QD
     Route: 048
     Dates: start: 20010308
  8. SIMVASTATIN [Concomitant]
     Indication: CORONARY ARTERY DISEASE
     Dosage: 10 MG, QD
     Route: 048
     Dates: start: 200706
  9. RAMIPRIL [Concomitant]
     Indication: HYPERTENSION
     Dosage: 5 MG, QD
     Route: 048
     Dates: start: 20050527
  10. CANEPHRON                          /07490501/ [Concomitant]
     Indication: URINARY TRACT INFECTION
     Dosage: 57 MG, UNK
     Dates: start: 201210
  11. ISICOM [Concomitant]
     Indication: PARKINSON^S DISEASE
     Dosage: 37.5 MG, QD
     Dates: start: 2010
  12. SELEGILIN [Concomitant]
     Indication: PARKINSON^S DISEASE
     Dosage: 10 MG, QD
     Dates: start: 2010
  13. RISEDRONATE SODIUM [Concomitant]
     Indication: OSTEOPOROSIS
     Dosage: 35 MG, Q1WK
     Dates: start: 2010
  14. COLECALCIFEROL [Concomitant]
     Indication: OSTEOPOROSIS
     Dosage: 20000 DF, Q1MONTH
     Dates: start: 2010
  15. RUDOTEL [Concomitant]
     Indication: SLEEP DISORDER
     Dosage: 5 MG, UNK
     Dates: start: 2010
  16. METOPROLOL [Concomitant]
     Indication: HYPERTENSION
     Dosage: 200 MG, QD
     Dates: start: 2007
  17. DINATRIUM EDETAD WATER [Concomitant]
     Indication: DRY EYE
     Dosage: 37.5 MG, QD
     Dates: start: 2010

REACTIONS (3)
  - Gastritis [Unknown]
  - Gastrooesophageal reflux disease [Unknown]
  - Vomiting [Recovered/Resolved]
